FAERS Safety Report 17065201 (Version 1)
Quarter: 2019Q4

REPORT INFORMATION
  Report Type: Spontaneous
  Country: US (occurrence: US)
  Receive Date: 20191024
  Receipt Date: 20191024
  Transmission Date: 20200122
  Serious: No
  Sender: FDA-Public Use
  Company Number: None

PATIENT
  Sex: Female

DRUGS (1)
  1. MAVYRET [Suspect]
     Active Substance: GLECAPREVIR\PIBRENTASVIR
     Indication: HEPATITIS C
     Dosage: ?          OTHER DOSE:100/40 MG;?
     Route: 048
     Dates: start: 20190928

REACTIONS (5)
  - Feeling hot [None]
  - Burning sensation [None]
  - Diarrhoea [None]
  - Nausea [None]
  - Fatigue [None]
